FAERS Safety Report 9789422 (Version 2)
Quarter: 2013Q4

REPORT INFORMATION
  Report Type: Report from Study
  Country: US (occurrence: US)
  Receive Date: 20131231
  Receipt Date: 20131231
  Transmission Date: 20140711
  Serious: Yes (Other)
  Sender: FDA-Public Use
  Company Number: US-ABBVIE-12P-163-1006684-00

PATIENT
  Sex: Female
  Weight: 75.82 kg

DRUGS (9)
  1. HUMIRA [Suspect]
     Indication: ANKYLOSING SPONDYLITIS
     Dates: end: 201212
  2. AMLODIPINE [Concomitant]
     Indication: HYPERTENSION
  3. HYDROCHLOROTHIAZIDE [Concomitant]
     Indication: HYPERTENSION
  4. PREDNISONE [Concomitant]
     Indication: ANKYLOSING SPONDYLITIS
  5. ZYRTEC [Concomitant]
     Indication: HYPERSENSITIVITY
  6. BIOFLEX [Concomitant]
     Indication: PRODUCT USED FOR UNKNOWN INDICATION
  7. LOTREL [Concomitant]
     Indication: HYPERTENSION
  8. IRON [Concomitant]
     Indication: ANAEMIA
  9. UNKNOWN MEDICATION [Concomitant]
     Indication: HYPERTENSION

REACTIONS (12)
  - Lymphadenopathy [Recovered/Resolved]
  - Thyroid cancer [Recovered/Resolved]
  - Thyroid neoplasm [Recovered/Resolved]
  - Thyroid neoplasm [Recovered/Resolved]
  - Axillary mass [Recovered/Resolved]
  - Ankylosing spondylitis [Not Recovered/Not Resolved]
  - Weight decreased [Not Recovered/Not Resolved]
  - Dehydration [Recovered/Resolved]
  - Abdominal pain [Recovered/Resolved]
  - Malaise [Recovered/Resolved]
  - Constipation [Recovered/Resolved]
  - Hypophagia [Recovered/Resolved]
